FAERS Safety Report 8773965 (Version 2)
Quarter: 2012Q4

REPORT INFORMATION
  Report Type: 
  Country: US (occurrence: US)
  Receive Date: 20120907
  Receipt Date: 20121005
  Transmission Date: 20130627
  Serious: No
  Sender: FDA-Public Use
  Company Number: US-ELI_LILLY_AND_COMPANY-US201208008742

PATIENT
  Sex: Male

DRUGS (5)
  1. ZYPREXA RELPREVV [Suspect]
  2. SEPTRA [Concomitant]
     Indication: SINUSITIS
     Dosage: UNK, unknown
  3. BACTRIM [Concomitant]
     Indication: SINUSITIS
     Dosage: UNK, unknown
  4. OMEPRAZOLE [Concomitant]
     Dosage: 20 mg, unknown
  5. SIMVASTATIN [Concomitant]
     Dosage: 20 mg, UNK

REACTIONS (1)
  - Neutrophil count decreased [Recovered/Resolved]
